FAERS Safety Report 9698578 (Version 1)
Quarter: 2013Q4

REPORT INFORMATION
  Report Type: Spontaneous
  Country: GB (occurrence: GB)
  Receive Date: 20131120
  Receipt Date: 20131120
  Transmission Date: 20140711
  Serious: Yes (Other)
  Sender: FDA-Public Use
  Company Number: GB-GLAXOSMITHKLINE-B0942070A

PATIENT
  Age: 21 Year
  Sex: Female
  Weight: 96.16 kg

DRUGS (5)
  1. BECONASE [Suspect]
     Indication: HYPERSENSITIVITY
     Dosage: 8IUAX PER DAY
     Route: 045
     Dates: start: 201103, end: 20131028
  2. IMPLANON [Concomitant]
     Indication: CONTRACEPTION
     Route: 067
     Dates: start: 201206, end: 201303
  3. MIRENA [Concomitant]
     Indication: CONTRACEPTION
     Route: 067
     Dates: start: 20101205, end: 201110
  4. DIAZEPAM [Concomitant]
  5. TRAMADOL [Concomitant]

REACTIONS (2)
  - Sinus headache [Not Recovered/Not Resolved]
  - Headache [Not Recovered/Not Resolved]
